FAERS Safety Report 8531794-1 (Version None)
Quarter: 2012Q3

REPORT INFORMATION
  Report Type: 
  Country: None (occurrence: None)
  Receive Date: 20120723
  Receipt Date: 20120716
  Transmission Date: 20120928
  Serious: No
  Sender: FDA-Public Use
  Company Number: US-B.I. PHARMACEUTICALS,INC./RIDGEFIELD-2012-BP-15809BP

PATIENT
  Sex: Male

DRUGS (7)
  1. LISINOPRIL [Concomitant]
     Indication: HYPERTENSION
     Route: 048
  2. ASPIRIN [Concomitant]
     Indication: PRODUCT USED FOR UNKNOWN INDICATION
     Dosage: 81 MG
     Route: 048
  3. SPIRIVA [Suspect]
     Indication: CHRONIC OBSTRUCTIVE PULMONARY DISEASE
     Dosage: 18 MCG
     Route: 055
     Dates: start: 20120601
  4. PRAVASTATIN [Concomitant]
     Indication: BLOOD CHOLESTEROL
     Dosage: 20 MG
     Route: 048
  5. METHADONE HCL [Concomitant]
     Indication: BACK PAIN
     Dosage: 40 MG
     Route: 048
     Dates: start: 20100101
  6. METFORMIN HYDROCHLORIDE [Concomitant]
     Indication: DIABETES MELLITUS
     Dosage: 2000 MG
     Route: 048
  7. VALIUM [Concomitant]
     Indication: ANXIETY
     Dosage: 15 MG
     Route: 048
     Dates: start: 20120501

REACTIONS (5)
  - DISORIENTATION [None]
  - PYREXIA [None]
  - PROSTATOMEGALY [None]
  - URINARY TRACT INFECTION [None]
  - BACK PAIN [None]
